FAERS Safety Report 7620873-9 (Version None)
Quarter: 2011Q3

REPORT INFORMATION
  Report Type: 
  Country: None (occurrence: None)
  Receive Date: 20110719
  Receipt Date: 20091122
  Transmission Date: 20111222
  Serious: Yes (Death, Other)
  Sender: FDA-Public Use
  Company Number: US-BAYER-200939889NA

PATIENT
  Age: 83 Year
  Sex: Female
  Weight: 84 kg

DRUGS (12)
  1. PLASMA [Concomitant]
     Dosage: UNK
     Dates: start: 20070223
  2. FENTANYL-100 [Concomitant]
     Route: 042
  3. TRASYLOL [Suspect]
     Indication: PRODUCT USED FOR UNKNOWN INDICATION
     Dosage: 1 MILLION UNITS PRIME
     Route: 042
     Dates: start: 20070223, end: 20070223
  4. PROTAMINE SULFATE [Concomitant]
     Dosage: 300MG
     Dates: start: 20070223, end: 20070223
  5. METOPROLOL TARTRATE [Concomitant]
     Dosage: 3MG
     Dates: start: 20070223, end: 20070223
  6. TRASYLOL [Suspect]
     Indication: MITRAL VALVE REPLACEMENT
     Dosage: LOADING DOSE - 200ML BOLUS THEN 50ML/HR INTRAVENOUS INFUSION
     Route: 042
     Dates: start: 20070223, end: 20070223
  7. RED BLOOD CELLS [Concomitant]
     Dosage: UNK
     Dates: start: 20070223
  8. HEPARIN [Concomitant]
     Dosage: 22,000 UNITS
     Dates: start: 20070223, end: 20070223
  9. LASIX [Concomitant]
     Route: 042
  10. MILRINONE [Concomitant]
     Route: 042
  11. VANCOMYCIN [Concomitant]
     Dosage: 1 GRAM
     Route: 042
  12. MANNITOL [Concomitant]
     Dosage: 12.5 GRAMS
     Dates: start: 20070223, end: 20070223

REACTIONS (14)
  - PAIN [None]
  - DEATH [None]
  - MULTI-ORGAN FAILURE [None]
  - UNEVALUABLE EVENT [None]
  - CEREBROVASCULAR ACCIDENT [None]
  - ANHEDONIA [None]
  - RENAL IMPAIRMENT [None]
  - FEAR [None]
  - RENAL INJURY [None]
  - STRESS [None]
  - EMOTIONAL DISTRESS [None]
  - ANXIETY [None]
  - RENAL FAILURE [None]
  - INJURY [None]
